FAERS Safety Report 8324791-2 (Version None)
Quarter: 2012Q2

REPORT INFORMATION
  Report Type: 
  Country: None (occurrence: None)
  Receive Date: 20120501
  Receipt Date: 20120425
  Transmission Date: 20120825
  Serious: Yes (Disabling, Other)
  Sender: FDA-Public Use
  Company Number: PHHY2012FR006427

PATIENT
  Sex: Female
  Weight: 64 kg

DRUGS (4)
  1. VERAPAMIL [Concomitant]
     Indication: ARTERIOSPASM CORONARY
  2. NATECAL D [Concomitant]
  3. PIASCLEDINE [Concomitant]
  4. ZOLEDRONOC ACID [Suspect]
     Indication: OSTEOPOROSIS
     Dosage: UNK
     Route: 042
     Dates: start: 20111120

REACTIONS (12)
  - OEDEMA [None]
  - PYREXIA [None]
  - ARTHRALGIA [None]
  - MYALGIA [None]
  - ERYTHEMA [None]
  - PAIN IN EXTREMITY [None]
  - HYPERAESTHESIA [None]
  - OEDEMA PERIPHERAL [None]
  - CHILLS [None]
  - MUSCULOSKELETAL STIFFNESS [None]
  - GENERAL PHYSICAL HEALTH DETERIORATION [None]
  - INFLUENZA LIKE ILLNESS [None]
